FAERS Safety Report 10333564 (Version 1)
Quarter: 2014Q3

REPORT INFORMATION
  Report Type: Spontaneous
  Country: FR (occurrence: FR)
  Receive Date: 20140723
  Receipt Date: 20140723
  Transmission Date: 20150326
  Serious: Yes (Death)
  Sender: FDA-Public Use
  Company Number: FR-ROCHE-1438828

PATIENT
  Age: 51 Year
  Sex: Male

DRUGS (7)
  1. INEXIUM [Suspect]
     Active Substance: ESOMEPRAZOLE
     Indication: ULCER
     Route: 048
     Dates: start: 201405
  2. PREVISCAN (FRANCE) [Suspect]
     Active Substance: FLUINDIONE
     Indication: DEEP VEIN THROMBOSIS
     Route: 048
     Dates: start: 201405
  3. NOROXINE [Suspect]
     Active Substance: NORFLOXACIN
     Indication: URINARY TRACT INFECTION
     Route: 048
     Dates: start: 20140527
  4. CLOZAPINE. [Suspect]
     Active Substance: CLOZAPINE
     Indication: PARKINSON^S DISEASE
     Route: 048
     Dates: start: 20140522
  5. STALEVO [Suspect]
     Active Substance: CARBIDOPA\ENTACAPONE\LEVODOPA
     Indication: PARKINSON^S DISEASE
     Route: 048
  6. VALIUM [Suspect]
     Active Substance: DIAZEPAM
     Indication: ANXIETY
     Route: 048
  7. ANTIVITAMIN K [Concomitant]
     Active Substance: WARFARIN

REACTIONS (1)
  - Sudden death [Fatal]

NARRATIVE: CASE EVENT DATE: 20140629
